FAERS Safety Report 7331283-6 (Version None)
Quarter: 2011Q1

REPORT INFORMATION
  Report Type: 
  Country: None (occurrence: None)
  Receive Date: 20110304
  Receipt Date: 20110223
  Transmission Date: 20110831
  Serious: Yes (Hospitalization)
  Sender: FDA-Public Use
  Company Number: IT-JNJFOC-20110207610

PATIENT
  Sex: Male

DRUGS (2)
  1. TELMISARTAN AND HYDROCHLOROTHIAZIDE [Concomitant]
     Route: 065
  2. LEVOXACIN [Suspect]
     Indication: INFLUENZA
     Route: 048

REACTIONS (2)
  - RESPIRATORY FAILURE [None]
  - URTICARIA [None]
